FAERS Safety Report 6508490-5 (Version None)
Quarter: 2009Q4

REPORT INFORMATION
  Report Type: 
  Country: None (occurrence: None)
  Receive Date: 20091221
  Receipt Date: 20081119
  Transmission Date: 20100525
  Serious: No
  Sender: FDA-Public Use
  Company Number: US-ASTRAZENECA-2008UW26038

PATIENT
  Age: 55 Year
  Sex: Female
  Weight: 77.6 kg

DRUGS (11)
  1. CRESTOR [Suspect]
     Indication: BLOOD CHOLESTEROL INCREASED
     Dosage: HS
     Route: 048
     Dates: start: 20060101
  2. ASPIRIN [Concomitant]
  3. IBUPROFEN [Concomitant]
  4. VITAMINS [Concomitant]
  5. POTASSIUM CHLORIDE [Concomitant]
  6. METOPROLOL SUCCINATE [Concomitant]
  7. HYDROCHLOROTHIAZIDE [Concomitant]
  8. MAGNESIUM OXIDE [Concomitant]
  9. LORATADINE [Concomitant]
  10. CALTRATE [Concomitant]
  11. LISINOPRIL [Concomitant]
     Route: 048

REACTIONS (1)
  - INSOMNIA [None]
